FAERS Safety Report 19782874 (Version 1)
Quarter: 2021Q3

REPORT INFORMATION
  Report Type: Spontaneous
  Country: JP (occurrence: JP)
  Receive Date: 20210902
  Receipt Date: 20210902
  Transmission Date: 20211014
  Serious: Yes (Hospitalization)
  Sender: FDA-Public Use
  Company Number: JP-ALLERGAN-2124380US

PATIENT
  Sex: Female

DRUGS (2)
  1. GATIFLO [Suspect]
     Active Substance: GATIFLOXACIN
     Indication: CONJUNCTIVITIS
     Dosage: 3 GTT, QID
     Route: 047
     Dates: start: 20210616
  2. FLUOROMETHOLONE ^NITTO^ [Suspect]
     Active Substance: FLUOROMETHOLONE
     Indication: HYPERSENSITIVITY
     Dosage: UNK, QID
     Route: 047
     Dates: start: 20210616

REACTIONS (1)
  - Allergy to chemicals [Unknown]

NARRATIVE: CASE EVENT DATE: 20210616
